FAERS Safety Report 5634942-6 (Version None)
Quarter: 2008Q1

REPORT INFORMATION
  Report Type: 
  Country: None (occurrence: None)
  Receive Date: 20080221
  Receipt Date: 20080221
  Transmission Date: 20080703
  Serious: Yes (Life-Threatening, Hospitalization)
  Sender: FDA-Public Use
  Company Number: None

PATIENT
  Age: 85 Year
  Sex: Male
  Weight: 61.2356 kg

DRUGS (2)
  1. EXFORGE [Suspect]
     Indication: HYPERTENSION
     Dosage: 1 TABLET DAILY PO
     Route: 048
     Dates: start: 20070813, end: 20071231
  2. TEKTURNA [Suspect]
     Indication: HYPERTENSION
     Dosage: 1/2 TABLE  DAILY  PO
     Route: 048
     Dates: start: 20070906, end: 20071231

REACTIONS (1)
  - HYPERKALAEMIA [None]
